FAERS Safety Report 5264091-0 (Version None)
Quarter: 2007Q1

REPORT INFORMATION
  Report Type: 
  Country: None (occurrence: None)
  Receive Date: 20070313
  Receipt Date: 20070228
  Transmission Date: 20070707
  Serious: Yes (Other)
  Sender: FDA-Public Use
  Company Number: US-ELI_LILLY_AND_COMPANY-US200609004408

PATIENT
  Age: 52 Year
  Sex: Female
  Weight: 111 kg

DRUGS (9)
  1. CYMBALTA [Suspect]
     Indication: PAIN
     Dosage: 60 MG, UNK
     Dates: start: 20060711, end: 20060717
  2. CYMBALTA [Suspect]
     Dosage: 20 MG, 2/D
     Dates: start: 20060718, end: 20060802
  3. CYMBALTA [Suspect]
     Dosage: 20 MG, DAILY (1/D)
     Dates: start: 20060803, end: 20060804
  4. PROZAC [Concomitant]
     Dosage: 60 MG, EACH EVENING
     Dates: end: 20060710
  5. PROZAC [Concomitant]
     Dosage: 40 MG, EACH EVENING
     Dates: start: 20060711, end: 20060717
  6. PROZAC [Concomitant]
     Dosage: 20 MG, EACH EVENING
     Dates: start: 20060718, end: 20060803
  7. AMBIEN [Concomitant]
  8. PRILOSEC [Concomitant]
  9. ALBUTEROL [Concomitant]

REACTIONS (4)
  - HEPATITIS ACUTE [None]
  - INSOMNIA [None]
  - JAUNDICE CHOLESTATIC [None]
  - PYELONEPHRITIS [None]
